FAERS Safety Report 23976179 (Version 5)
Quarter: 2025Q1

REPORT INFORMATION
  Report Type: Spontaneous
  Country: CA (occurrence: CA)
  Receive Date: 20240614
  Receipt Date: 20250218
  Transmission Date: 20250409
  Serious: Yes (Other)
  Sender: PFIZER
  Company Number: CA-PFIZER INC-202300294303

PATIENT
  Age: 69 Year
  Sex: Male
  Weight: 91 kg

DRUGS (18)
  1. RUXIENCE [Suspect]
     Active Substance: RITUXIMAB-PVVR
     Indication: Granulomatosis with polyangiitis
     Dosage: 775 MG, WEEKLY 4 WEEKS
     Route: 042
     Dates: start: 20230830, end: 20230921
  2. RUXIENCE [Suspect]
     Active Substance: RITUXIMAB-PVVR
     Dosage: 775 MG, WEEKLY 4 WEEKS
     Route: 042
     Dates: start: 20230906, end: 20230906
  3. RUXIENCE [Suspect]
     Active Substance: RITUXIMAB-PVVR
     Dosage: 775 MG, WEEKLY 4 WEEKS
     Route: 042
     Dates: start: 20230906, end: 20230906
  4. RUXIENCE [Suspect]
     Active Substance: RITUXIMAB-PVVR
     Dosage: 725 MG, EVERY 1 WEEK
     Route: 042
     Dates: start: 20230921, end: 20230921
  5. RUXIENCE [Suspect]
     Active Substance: RITUXIMAB-PVVR
     Dosage: 725 MG, EVERY 1 WEEK
     Route: 042
     Dates: start: 20230921
  6. RUXIENCE [Suspect]
     Active Substance: RITUXIMAB-PVVR
     Route: 042
     Dates: start: 20240131, end: 20240131
  7. RUXIENCE [Suspect]
     Active Substance: RITUXIMAB-PVVR
     Route: 042
     Dates: start: 20240729, end: 20240729
  8. RUXIENCE [Suspect]
     Active Substance: RITUXIMAB-PVVR
     Route: 042
     Dates: start: 20250212
  9. AMLODIPINE BESYLATE [Concomitant]
     Active Substance: AMLODIPINE BESYLATE
  10. COVID-19 VACCINE [Concomitant]
     Dates: start: 20241106, end: 20241106
  11. INFLUENZA VIRUS VACCINE [Concomitant]
     Active Substance: INFLUENZA VIRUS VACCINE
     Dates: start: 20241106, end: 20241106
  12. FERROUS GLUCONATE [Concomitant]
     Active Substance: FERROUS GLUCONATE
  13. PANTOPRAZOLE [Concomitant]
     Active Substance: PANTOPRAZOLE
  14. PREDNISONE [Concomitant]
     Active Substance: PREDNISONE
  15. PROSCAR [Concomitant]
     Active Substance: FINASTERIDE
  16. RISEDRONATE SODIUM [Concomitant]
     Active Substance: RISEDRONATE SODIUM
  17. SULFATRIM [Concomitant]
     Active Substance: SULFAMETHOXAZOLE\TRIMETHOPRIM
  18. TERAZOSIN [Concomitant]
     Active Substance: TERAZOSIN HYDROCHLORIDE

REACTIONS (7)
  - Neutropenia [Unknown]
  - Skin mass [Unknown]
  - Blood cholesterol increased [Unknown]
  - Infection [Unknown]
  - Off label use [Unknown]
  - Intentional product use issue [Unknown]
  - Off label use [Unknown]

NARRATIVE: CASE EVENT DATE: 20230906
